FAERS Safety Report 8772139 (Version 4)
Quarter: 2014Q3

REPORT INFORMATION
  Report Type: Report from Study
  Country: US (occurrence: US)
  Receive Date: 20120905
  Receipt Date: 20140818
  Transmission Date: 20150326
  Serious: Yes (Death)
  Sender: FDA-Public Use
  Company Number: US-ROCHE-CID000000002102751

PATIENT
  Age: 69 Year
  Sex: Male

DRUGS (3)
  1. TARCEVA [Suspect]
     Active Substance: ERLOTINIB HYDROCHLORIDE
     Indication: CHOLANGIOCARCINOMA
     Route: 048
     Dates: start: 20111031, end: 20111204
  2. AVASTIN [Suspect]
     Active Substance: BEVACIZUMAB
     Indication: CHOLANGIOCARCINOMA
     Route: 042
     Dates: start: 20111003, end: 20111031
  3. AVASTIN [Suspect]
     Active Substance: BEVACIZUMAB
     Indication: CHOLANGIOCARCINOMA

REACTIONS (5)
  - Rash [Recovered/Resolved]
  - Decreased appetite [Recovered/Resolved]
  - Disease progression [Fatal]
  - Diarrhoea [Recovered/Resolved]
  - Hepatic failure [Fatal]

NARRATIVE: CASE EVENT DATE: 20111201
